FAERS Safety Report 5011166-7 (Version None)
Quarter: 2006Q2

REPORT INFORMATION
  Report Type: 
  Country: None (occurrence: None)
  Receive Date: 20060525
  Receipt Date: 20060512
  Transmission Date: 20061013
  Serious: Yes (Other)
  Sender: FDA-Public Use
  Company Number: ES-BRISTOL-MYERS SQUIBB COMPANY-13387493

PATIENT
  Age: 45 Year
  Sex: Female

DRUGS (3)
  1. DIDANOSINE [Suspect]
     Indication: HIV INFECTION
  2. STAVUDINE [Suspect]
     Indication: HIV INFECTION
  3. NEVIRAPINE [Suspect]
     Indication: HIV INFECTION

REACTIONS (3)
  - ASCITES [None]
  - HEPATOCELLULAR DAMAGE [None]
  - PORTAL VEIN THROMBOSIS [None]
